FAERS Safety Report 21227097 (Version 2)
Quarter: 2022Q3

REPORT INFORMATION
  Report Type: Spontaneous
  Country: US (occurrence: US)
  Receive Date: 20220818
  Receipt Date: 20220906
  Transmission Date: 20221027
  Serious: Yes (Other)
  Sender: FDA-Public Use
  Company Number: US-ORGANON-O2208USA001420

PATIENT
  Age: 25 Year
  Sex: Female
  Weight: 207.29 kg

DRUGS (2)
  1. NEXPLANON [Suspect]
     Active Substance: ETONOGESTREL
     Indication: Contraception
     Dosage: 1 IMPLANT OF 68 MILLIGRAM IN LEFT ARM
     Route: 059
     Dates: start: 20201013, end: 20201014
  2. NEXPLANON [Suspect]
     Active Substance: ETONOGESTREL
     Indication: Contraception
     Dosage: 1 IMPLANT OF 68 MG IN LEFT ARM
     Route: 059
     Dates: start: 20201015

REACTIONS (3)
  - Device expulsion [Recovered/Resolved]
  - Complication associated with device [Not Recovered/Not Resolved]
  - Weight increased [Unknown]

NARRATIVE: CASE EVENT DATE: 20201014
